FAERS Safety Report 8157241-X (Version None)
Quarter: 2012Q1

REPORT INFORMATION
  Report Type: 
  Country: None (occurrence: None)
  Receive Date: 20120222
  Receipt Date: 20120222
  Transmission Date: 20120608
  Serious: Yes (Other)
  Sender: FDA-Public Use
  Company Number: None

PATIENT
  Sex: Female

DRUGS (1)
  1. FINACEA [Suspect]
     Indication: ROSACEA
     Dosage: APPLY TO AFFECTED AREA
     Dates: start: 20081001, end: 20081030

REACTIONS (3)
  - PURULENCE [None]
  - PRURITUS [None]
  - ACNE [None]
